FAERS Safety Report 5030704-1 (Version None)
Quarter: 2006Q2

REPORT INFORMATION
  Report Type: 
  Country: None (occurrence: None)
  Receive Date: 20060615
  Receipt Date: 20060607
  Transmission Date: 20061013
  Serious: Yes (Other)
  Sender: FDA-Public Use
  Company Number: 2006073197

PATIENT
  Sex: Female

DRUGS (3)
  1. NORVASC [Suspect]
     Indication: ILL-DEFINED DISORDER
  2. AVAPRO [Concomitant]
  3. ANTIBIOTICS [Concomitant]

REACTIONS (5)
  - DIZZINESS [None]
  - DYSPHAGIA [None]
  - HEADACHE [None]
  - SWELLING FACE [None]
  - SWOLLEN TONGUE [None]
